FAERS Safety Report 26061979 (Version 1)
Quarter: 2025Q4

REPORT INFORMATION
  Report Type: Spontaneous
  Country: US (occurrence: US)
  Receive Date: 20251119
  Receipt Date: 20251119
  Transmission Date: 20260117
  Serious: Yes (Life-Threatening, Hospitalization, Other)
  Sender: RISING PHARMACEUTICALS
  Company Number: US-RISINGPHARMA-US-2025RISLIT00589

PATIENT
  Age: 12 Month
  Sex: Female

DRUGS (1)
  1. FENTANYL CITRATE [Suspect]
     Active Substance: FENTANYL CITRATE
     Indication: Product used for unknown indication
     Route: 065

REACTIONS (19)
  - Acute respiratory failure [Recovering/Resolving]
  - Mental status changes [Recovering/Resolving]
  - Metabolic acidosis [Recovering/Resolving]
  - Leukoencephalopathy [Recovering/Resolving]
  - Unresponsive to stimuli [Recovering/Resolving]
  - Pulmonary oedema [Recovering/Resolving]
  - Acute kidney injury [Recovering/Resolving]
  - Toxicity to various agents [Recovering/Resolving]
  - Hypothermia [Recovering/Resolving]
  - Hypoxia [Recovering/Resolving]
  - Hyperglycaemia [Recovering/Resolving]
  - Moaning [Recovering/Resolving]
  - Grunting [Recovering/Resolving]
  - Miosis [Recovering/Resolving]
  - Bradycardia [Recovering/Resolving]
  - Pyrexia [Recovering/Resolving]
  - International normalised ratio increased [Recovering/Resolving]
  - Hypertransaminasaemia [Recovering/Resolving]
  - Accidental exposure to product [Unknown]
